FAERS Safety Report 8509689-9 (Version None)
Quarter: 2012Q3

REPORT INFORMATION
  Report Type: 
  Country: None (occurrence: None)
  Receive Date: 20120713
  Receipt Date: 20120702
  Transmission Date: 20120928
  Serious: Yes (Hospitalization)
  Sender: FDA-Public Use
  Company Number: US-ELI_LILLY_AND_COMPANY-US201111005097

PATIENT
  Sex: Male

DRUGS (2)
  1. FORTEO [Suspect]
     Dosage: UNK
     Dates: start: 20110901
  2. FORTEO [Suspect]
     Indication: OSTEOPOROSIS
     Dosage: UNK
     Dates: start: 20110901

REACTIONS (9)
  - OROPHARYNGEAL PAIN [None]
  - DIARRHOEA [None]
  - MALAISE [None]
  - DEHYDRATION [None]
  - VITAMIN B12 DECREASED [None]
  - VOMITING [None]
  - FATIGUE [None]
  - APPETITE DISORDER [None]
  - ASTHENIA [None]
